FAERS Safety Report 8780883 (Version 1)
Quarter: 2012Q4

REPORT INFORMATION
  Report Type: 
  Country: NO (occurrence: NO)
  Receive Date: 20120917
  Receipt Date: 20120917
  Transmission Date: 20130627
  Serious: Yes (Other)
  Sender: FDA-Public Use
  Company Number: NO-JNJFOC-20120904266

PATIENT
  Age: 53 Year
  Sex: Female

DRUGS (1)
  1. REMICADE [Suspect]
     Indication: RHEUMATOID ARTHRITIS
     Dosage: duration of drug administration 9 years
     Route: 042
     Dates: start: 2003, end: 2012

REACTIONS (3)
  - Invasive ductal breast carcinoma [Not Recovered/Not Resolved]
  - Oestrogen receptor assay positive [None]
  - Progesterone receptor assay positive [None]
